FAERS Safety Report 20430301 (Version 1)
Quarter: 2022Q1

REPORT INFORMATION
  Report Type: Report from Study
  Country: FR (occurrence: FR)
  Receive Date: 20220204
  Receipt Date: 20220204
  Transmission Date: 20220424
  Serious: Yes (Hospitalization, Other)
  Sender: FDA-Public Use
  Company Number: FR-SERVIER-S20005419

PATIENT

DRUGS (8)
  1. PEGASPARGASE [Suspect]
     Active Substance: PEGASPARGASE
     Indication: Acute lymphocytic leukaemia
     Dosage: 2300 IU, ON D26
     Route: 042
     Dates: start: 20190603, end: 20190708
  2. CYCLOPHOSPHAMIDE [Suspect]
     Active Substance: CYCLOPHOSPHAMIDE
     Indication: Acute lymphocytic leukaemia
     Dosage: 1.7 G ON D1
     Route: 042
     Dates: start: 20190624
  3. CYTARABINE [Suspect]
     Active Substance: CYTARABINE
     Indication: Acute lymphocytic leukaemia
     Dosage: 129.7 MG ON D3-D6, D10-D1
     Route: 042
     Dates: start: 20190626, end: 20210706
  4. CYTARABINE [Suspect]
     Active Substance: CYTARABINE
     Dosage: 30 MG ON D3
     Route: 037
     Dates: start: 20190626
  5. MERCAPTOPURINE [Suspect]
     Active Substance: MERCAPTOPURINE
     Indication: Acute lymphocytic leukaemia
     Dosage: 100 MG, ON D1-D14
     Route: 048
     Dates: start: 20190624
  6. METHOTREXATE [Suspect]
     Active Substance: METHOTREXATE
     Indication: Acute lymphocytic leukaemia
     Dosage: 15 MG ON D3
     Route: 037
     Dates: start: 20190626
  7. HYDROCORTISONE [Suspect]
     Active Substance: HYDROCORTISONE
     Indication: Acute lymphocytic leukaemia
     Dosage: 15 MG ON D3
     Route: 037
     Dates: start: 20190626
  8. BACTRIM [Concomitant]
     Active Substance: SULFAMETHOXAZOLE\TRIMETHOPRIM
     Indication: Antifungal prophylaxis
     Dosage: 800 MG, 3X A WEEK
     Route: 048
     Dates: start: 20190509

REACTIONS (2)
  - Bronchopulmonary aspergillosis [Recovered/Resolved]
  - Hypersensitivity [Recovered/Resolved]

NARRATIVE: CASE EVENT DATE: 20190703
